FAERS Safety Report 8509303-2 (Version None)
Quarter: 2012Q3

REPORT INFORMATION
  Report Type: 
  Country: None (occurrence: None)
  Receive Date: 20120713
  Receipt Date: 20110515
  Transmission Date: 20120928
  Serious: Yes (Death, Other)
  Sender: FDA-Public Use
  Company Number: ZA-ROCHE-1087217

PATIENT
  Sex: Male

DRUGS (4)
  1. PREDNISONE [Concomitant]
  2. VALCYTE [Suspect]
     Indication: RENAL TRANSPLANT
     Route: 048
     Dates: start: 20110319
  3. NEORAL [Concomitant]
  4. CELLCEPT [Suspect]
     Indication: RENAL TRANSPLANT
     Route: 048
     Dates: start: 20110319

REACTIONS (2)
  - SEPSIS [None]
  - DEATH [None]
